FAERS Safety Report 7045792-0 (Version None)
Quarter: 2010Q4

REPORT INFORMATION
  Report Type: 
  Country: None (occurrence: None)
  Receive Date: 20101014
  Receipt Date: 20101005
  Transmission Date: 20110411
  Serious: Yes (Hospitalization)
  Sender: FDA-Public Use
  Company Number: US-JNJFOC-20100505069

PATIENT
  Sex: Female
  Weight: 13.61 kg

DRUGS (3)
  1. CONCENTRATED TYLENOL INFANT DROPS [Suspect]
     Indication: PYREXIA
  2. CONCENTRATED TYLENOL INFANT DROPS [Suspect]
  3. CONCENTRATED TYLENOL INFANT DROPS [Suspect]

REACTIONS (2)
  - MUSCLE SPASMS [None]
  - PRODUCT QUALITY ISSUE [None]
